FAERS Safety Report 23466635 (Version 1)
Quarter: 2024Q1

REPORT INFORMATION
  Report Type: Other
  Country: US (occurrence: US)
  Receive Date: 20240201
  Receipt Date: 20240201
  Transmission Date: 20240409
  Serious: Yes (Death, Other)
  Sender: FDA-Public Use
  Company Number: US-BoehringerIngelheim-2024-BI-004598

PATIENT
  Age: 63 Year
  Sex: Female

DRUGS (1)
  1. ALTEPLASE [Suspect]
     Active Substance: ALTEPLASE
     Indication: Device related thrombosis
     Route: 065

REACTIONS (4)
  - Sepsis [Fatal]
  - Multiple organ dysfunction syndrome [Fatal]
  - Haemorrhagic transformation stroke [Unknown]
  - Off label use [Unknown]
